FAERS Safety Report 8918496 (Version 1)
Quarter: 2012Q4

REPORT INFORMATION
  Report Type: 
  Country: US (occurrence: US)
  Receive Date: 20121120
  Receipt Date: 20121120
  Transmission Date: 20130627
  Serious: No
  Sender: FDA-Public Use
  Company Number: US-ASTRAZENECA-2012SE18474

PATIENT
  Age: 50 Year
  Sex: Female

DRUGS (3)
  1. NEXIUM [Suspect]
     Route: 048
  2. PRILOSEC OTC [Suspect]
     Route: 048
  3. SEROQUEL [Concomitant]

REACTIONS (6)
  - Gastrooesophageal reflux disease [Unknown]
  - Dysphonia [Unknown]
  - Dyspepsia [Unknown]
  - Pain [Unknown]
  - Vomiting [Unknown]
  - Drug dose omission [Unknown]
